FAERS Safety Report 13764446 (Version 4)
Quarter: 2017Q3

REPORT INFORMATION
  Report Type: Report from Study
  Country: US (occurrence: US)
  Receive Date: 20170718
  Receipt Date: 20170810
  Transmission Date: 20171127
  Serious: Yes (Other)
  Sender: FDA-Public Use
  Company Number: US-JNJFOC-20170705904

PATIENT
  Age: 43 Year
  Sex: Male

DRUGS (1)
  1. STELARA [Suspect]
     Active Substance: USTEKINUMAB
     Indication: CROHN^S DISEASE
     Route: 042
     Dates: start: 20170630

REACTIONS (15)
  - Nausea [Not Recovered/Not Resolved]
  - Vomiting [Unknown]
  - Tremor [Unknown]
  - Decreased appetite [Unknown]
  - Abdominal pain [Unknown]
  - Joint swelling [Unknown]
  - Fall [Unknown]
  - Cellulitis [Unknown]
  - Headache [Recovered/Resolved]
  - Diarrhoea [Unknown]
  - Palpitations [Unknown]
  - Nervousness [Unknown]
  - Dysgeusia [Unknown]
  - Fatigue [Unknown]
  - Dizziness [Unknown]

NARRATIVE: CASE EVENT DATE: 2017
